FAERS Safety Report 10769989 (Version 2)
Quarter: 2015Q1

REPORT INFORMATION
  Report Type: Spontaneous
  Country: US (occurrence: US)
  Receive Date: 20150206
  Receipt Date: 20150319
  Transmission Date: 20150721
  Serious: Yes (Hospitalization)
  Sender: FDA-Public Use
  Company Number: US-INCYTE CORPORATION-2015IN000340

PATIENT
  Sex: Male
  Weight: 85.26 kg

DRUGS (10)
  1. DIGOXIN. [Concomitant]
     Active Substance: DIGOXIN
  2. OXYBUTYNIN [Concomitant]
     Active Substance: OXYBUTYNIN
  3. AMIODARONE [Concomitant]
     Active Substance: AMIODARONE
  4. SIMVASTATIN. [Concomitant]
     Active Substance: SIMVASTATIN
  5. WARFARIN [Concomitant]
     Active Substance: WARFARIN
  6. OMEPRAZOLE. [Concomitant]
     Active Substance: OMEPRAZOLE
  7. PREDNISONE. [Concomitant]
     Active Substance: PREDNISONE
  8. LOSARTAN [Concomitant]
     Active Substance: LOSARTAN
  9. JAKAFI [Suspect]
     Active Substance: RUXOLITINIB
     Indication: MYELOFIBROSIS
     Dosage: 10 MG, BID
     Route: 048
     Dates: start: 20130429
  10. HYDROCHLOROTHIAZIDE. [Concomitant]
     Active Substance: HYDROCHLOROTHIAZIDE

REACTIONS (1)
  - Pneumonia [Recovered/Resolved]
